FAERS Safety Report 7103843-9 (Version None)
Quarter: 2010Q4

REPORT INFORMATION
  Report Type: 
  Country: None (occurrence: None)
  Receive Date: 20101115
  Receipt Date: 20101109
  Transmission Date: 20110411
  Serious: Yes (Other)
  Sender: FDA-Public Use
  Company Number: US-PFIZER INC-2010146808

PATIENT
  Sex: Female
  Weight: 66.678 kg

DRUGS (2)
  1. LYRICA [Suspect]
     Indication: ARTHRITIS
     Dosage: 50 MG, 2X/DAY
     Route: 048
     Dates: start: 20100101
  2. ADVIL [Suspect]
     Indication: PAIN
     Dosage: UNK

REACTIONS (4)
  - BALANCE DISORDER [None]
  - DEPRESSED LEVEL OF CONSCIOUSNESS [None]
  - MENTAL IMPAIRMENT [None]
  - PAIN [None]
